FAERS Safety Report 4845316-X (Version None)
Quarter: 2005Q4

REPORT INFORMATION
  Report Type: 
  Country: None (occurrence: None)
  Receive Date: 20051205
  Receipt Date: 20051118
  Transmission Date: 20060501
  Serious: Yes (Hospitalization)
  Sender: FDA-Public Use
  Company Number: JP-JPN-A20052823

PATIENT
  Age: 20 Year
  Sex: Female

DRUGS (2)
  1. PAXIL [Suspect]
     Route: 048
  2. SOLANAX [Concomitant]
     Route: 048

REACTIONS (4)
  - BLOOD CREATINE PHOSPHOKINASE INCREASED [None]
  - HEPATIC FUNCTION ABNORMAL [None]
  - INTENTIONAL OVERDOSE [None]
  - SOMNOLENCE [None]
